FAERS Safety Report 8010530-1 (Version None)
Quarter: 2011Q4

REPORT INFORMATION
  Report Type: 
  Country: None (occurrence: None)
  Receive Date: 20111228
  Receipt Date: 20111219
  Transmission Date: 20120403
  Serious: Yes (Hospitalization)
  Sender: FDA-Public Use
  Company Number: PHHY2011US57569

PATIENT
  Sex: Male
  Weight: 17 kg

DRUGS (2)
  1. EXJADE [Suspect]
     Dosage: 375 MG, QD
     Route: 048
     Dates: start: 20111028
  2. EXJADE [Suspect]
     Dosage: 625 MG, QD
     Route: 048

REACTIONS (4)
  - NEUTROPENIA [None]
  - ABSCESS [None]
  - PURULENT DISCHARGE [None]
  - INFECTION [None]
